FAERS Safety Report 25718989 (Version 1)
Quarter: 2025Q3

REPORT INFORMATION
  Report Type: Spontaneous
  Country: US (occurrence: US)
  Receive Date: 20250823
  Receipt Date: 20250823
  Transmission Date: 20251020
  Serious: No
  Sender: SANOFI AVENTIS
  Company Number: US-SA-2025SA250712

PATIENT
  Age: 59 Year
  Sex: Female

DRUGS (5)
  1. DUPIXENT [Suspect]
     Active Substance: DUPILUMAB
     Indication: Chronic obstructive pulmonary disease
     Dosage: 300 MG, QOW
     Route: 058
     Dates: start: 202506
  2. PREDNISONE [Concomitant]
     Active Substance: PREDNISONE
     Dates: start: 2025, end: 2025
  3. PREDNISONE [Concomitant]
     Active Substance: PREDNISONE
     Dates: start: 202508
  4. OXYGEN [Concomitant]
     Active Substance: OXYGEN
  5. OXYGEN [Concomitant]
     Active Substance: OXYGEN
     Dates: start: 202507

REACTIONS (1)
  - Respiratory tract infection [Unknown]

NARRATIVE: CASE EVENT DATE: 20250101
